FAERS Safety Report 9527620 (Version 1)
Quarter: 2013Q3

REPORT INFORMATION
  Report Type: Spontaneous
  Country: US (occurrence: None)
  Receive Date: 20130913
  Receipt Date: 20130913
  Transmission Date: 20140515
  Serious: Yes (Hospitalization, Other)
  Sender: FDA-Public Use
  Company Number: ACO_38429_2013

PATIENT
  Age: 37 Year
  Sex: Female

DRUGS (9)
  1. AMPYRA [Suspect]
     Route: 048
     Dates: start: 20100603, end: 201212
  2. BACLOFEN (BACLOFEN) [Concomitant]
  3. VALIUM (DIAZEPAM) [Concomitant]
  4. DDAVP (DESMORPRESSIN ACETATE) [Concomitant]
  5. TYSABRI (NATALIZUMAB) [Concomitant]
  6. CYMBALTA (DULOXETINE HYDROCHLORIDE) [Concomitant]
  7. LEXAPRO (ESCITALOPRAM OXALATE) [Concomitant]
  8. PERCOCET [Concomitant]
  9. MARIJUANA (MARIJUANA) [Concomitant]

REACTIONS (4)
  - Convulsion [None]
  - Drug ineffective [None]
  - Moaning [None]
  - Tongue biting [None]
